FAERS Safety Report 5759546-6 (Version None)
Quarter: 2008Q2

REPORT INFORMATION
  Report Type: 
  Country: None (occurrence: None)
  Receive Date: 20080604
  Receipt Date: 20080604
  Transmission Date: 20081010
  Serious: Yes (Other)
  Sender: FDA-Public Use
  Company Number: None

PATIENT
  Sex: Male

DRUGS (1)
  1. METAGLIP [Suspect]
     Indication: TYPE 2 DIABETES MELLITUS
     Dosage: 5/500 BID PO
     Route: 048
     Dates: start: 20060301

REACTIONS (5)
  - ABDOMINAL PAIN [None]
  - DIARRHOEA [None]
  - DRUG INTOLERANCE [None]
  - HEADACHE [None]
  - VOMITING [None]
